FAERS Safety Report 23593765 (Version 1)
Quarter: 2024Q1

REPORT INFORMATION
  Report Type: Report from Study
  Country: US (occurrence: US)
  Receive Date: 20240304
  Receipt Date: 20240304
  Transmission Date: 20240410
  Serious: Yes (Other)
  Sender: FDA-Public Use
  Company Number: US-ABBVIE-5659492

PATIENT
  Sex: Male

DRUGS (1)
  1. HUMIRA [Suspect]
     Active Substance: ADALIMUMAB
     Indication: Product used for unknown indication
     Route: 058
     Dates: start: 2019, end: 202304

REACTIONS (4)
  - Volvulus [Unknown]
  - Post procedural infection [Not Recovered/Not Resolved]
  - Immunosuppression [Unknown]
  - Impaired healing [Unknown]

NARRATIVE: CASE EVENT DATE: 20220101
